FAERS Safety Report 9017174 (Version 1)
Quarter: 2013Q1

REPORT INFORMATION
  Report Type: Report from Study
  Country: AR (occurrence: AR)
  Receive Date: 20130117
  Receipt Date: 20130117
  Transmission Date: 20140127
  Serious: Yes (Hospitalization)
  Sender: FDA-Public Use
  Company Number: AR-ABBOTT-13P-007-1036431-00

PATIENT
  Age: 58 Year
  Sex: Female

DRUGS (7)
  1. HUMIRA [Suspect]
     Indication: RHEUMATOID ARTHRITIS
     Route: 058
     Dates: start: 20120831, end: 20121214
  2. METHOTREXATE [Concomitant]
     Indication: PRODUCT USED FOR UNKNOWN INDICATION
     Dosage: EVERY WEEK
  3. HYDROXYCHLOROQUINE [Concomitant]
     Indication: PRODUCT USED FOR UNKNOWN INDICATION
     Dosage: EVERY DAY
  4. DICLOFENAC [Concomitant]
     Indication: RHEUMATOID ARTHRITIS
  5. UNKNOWN OINTMENT [Concomitant]
     Indication: RHEUMATOID ARTHRITIS
  6. BETAMETHASONE [Concomitant]
     Indication: DISCOMFORT
  7. INDOMETHACIN [Concomitant]
     Indication: RHEUMATOID ARTHRITIS

REACTIONS (4)
  - Renal pain [Not Recovered/Not Resolved]
  - Gait disturbance [Not Recovered/Not Resolved]
  - Rheumatoid arthritis [Not Recovered/Not Resolved]
  - Fluid retention [Not Recovered/Not Resolved]
